FAERS Safety Report 7990140-2 (Version None)
Quarter: 2011Q4

REPORT INFORMATION
  Report Type: 
  Country: None (occurrence: None)
  Receive Date: 20111219
  Receipt Date: 20110225
  Transmission Date: 20120403
  Serious: No
  Sender: FDA-Public Use
  Company Number: US-ASTRAZENECA-2011SE10683

PATIENT
  Sex: Female

DRUGS (2)
  1. CRESTOR [Suspect]
     Route: 048
  2. LIPITOR [Suspect]
     Route: 048

REACTIONS (9)
  - MYALGIA [None]
  - MUSCULOSKELETAL STIFFNESS [None]
  - JOINT STIFFNESS [None]
  - MUSCLE SPASMS [None]
  - ARTHRALGIA [None]
  - TENDONITIS [None]
  - BACK PAIN [None]
  - ASTHENIA [None]
  - INITIAL INSOMNIA [None]
